FAERS Safety Report 20733002 (Version 1)
Quarter: 2022Q2

REPORT INFORMATION
  Report Type: Spontaneous
  Country: CN (occurrence: CN)
  Receive Date: 20220420
  Receipt Date: 20220420
  Transmission Date: 20220721
  Serious: Yes (Hospitalization)
  Sender: FDA-Public Use
  Company Number: CN-BAXTER-2022BAX008737

PATIENT
  Age: 47 Year
  Sex: Female
  Weight: 46 kg

DRUGS (18)
  1. CYCLOPHOSPHAMIDE [Suspect]
     Active Substance: CYCLOPHOSPHAMIDE
     Indication: Plasma cell myeloma
     Dosage: 1ST CHEMOTHERAPY, CYCLOPHOSPHAMIDE 0.7G + 0.9% NS250ML
     Route: 041
     Dates: start: 20220207, end: 20220207
  2. CYCLOPHOSPHAMIDE [Suspect]
     Active Substance: CYCLOPHOSPHAMIDE
     Dosage: 2ND CHEMOTHERAPY, CYCLOPHOSPHAMIDE 0.7G + 0.9% NS250ML
     Route: 041
     Dates: start: 20220308, end: 20220308
  3. CYCLOPHOSPHAMIDE [Suspect]
     Active Substance: CYCLOPHOSPHAMIDE
     Dosage: DOSE REINTRODUCED, CYCLOPHOSPHAMIDE  + 0.9% NS
     Route: 041
  4. BORTEZOMIB [Suspect]
     Active Substance: BORTEZOMIB
     Indication: Plasma cell myeloma
     Dosage: 1ST CHEMOTHERAPY;  BORTEZOMIB 1.8MG + 0.9% NS 0.72 ML
     Route: 058
     Dates: start: 20220207, end: 20220207
  5. BORTEZOMIB [Suspect]
     Active Substance: BORTEZOMIB
     Dosage: 2ND CHEMOTHERAPY;  BORTEZOMIB 1.8MG + 0.9% NS 0.72ML
     Route: 058
     Dates: start: 20220308, end: 20220308
  6. BORTEZOMIB [Suspect]
     Active Substance: BORTEZOMIB
     Dosage: DOSE REINTRODUCED;  BORTEZOMIB  + 0.9% NS
     Route: 058
  7. DEXAMETHASONE [Suspect]
     Active Substance: DEXAMETHASONE
     Indication: Plasma cell myeloma
     Dosage: 1ST CHEMOTHERAPY; DEXAMETHASONE 40MG + 0.9% NS 100ML
     Route: 041
     Dates: start: 20220207, end: 20220207
  8. DEXAMETHASONE [Suspect]
     Active Substance: DEXAMETHASONE
     Dosage: 2ND CHEMOTHERAPY; DEXAMETHASONE 40MG + 0.9% NS 100ML
     Route: 041
     Dates: start: 20220308, end: 20220308
  9. DEXAMETHASONE [Suspect]
     Active Substance: DEXAMETHASONE
     Dosage: DOSE REINTRODUCED; DEXAMETHASONE + 0.9% NS
     Route: 041
  10. SODIUM CHLORIDE [Suspect]
     Active Substance: SODIUM CHLORIDE
     Indication: Medication dilution
     Dosage: 1ST CHEMOTHERAPY; DEXAMETHASONE 40MG + 0.9% NS 100ML
     Route: 041
     Dates: start: 20220207, end: 20220207
  11. SODIUM CHLORIDE [Suspect]
     Active Substance: SODIUM CHLORIDE
     Dosage: 1ST CHEMOTHERAPY, CYCLOPHOSPHAMIDE 0.7G + 0.9% NS250ML
     Route: 041
     Dates: start: 20220207, end: 20220207
  12. SODIUM CHLORIDE [Suspect]
     Active Substance: SODIUM CHLORIDE
     Dosage: 2ND CHEMOTHERAPY; DEXAMETHASONE 40MG + 0.9% NS 100ML
     Route: 041
     Dates: start: 20220308, end: 20220308
  13. SODIUM CHLORIDE [Suspect]
     Active Substance: SODIUM CHLORIDE
     Dosage: 2ST CHEMOTHERAPY, CYCLOPHOSPHAMIDE 0.7G + 0.9% NS250ML
     Route: 041
     Dates: start: 20220308, end: 20220308
  14. SODIUM CHLORIDE [Suspect]
     Active Substance: SODIUM CHLORIDE
     Dosage: DOSE REINTRODUCED, CYCLOPHOSPHAMIDE  + 0.9% NS
     Route: 041
  15. SODIUM CHLORIDE [Suspect]
     Active Substance: SODIUM CHLORIDE
     Dosage: DOSE REINTRODUCED; DEXAMETHASONE + 0.9% NS
     Route: 041
  16. SODIUM CHLORIDE [Suspect]
     Active Substance: SODIUM CHLORIDE
     Dosage: 1ST CHEMOTHERAPY, BORTEZOMIB 1.8MG + 0.9% NS 0.72ML
     Route: 058
     Dates: start: 20220207, end: 20220207
  17. SODIUM CHLORIDE [Suspect]
     Active Substance: SODIUM CHLORIDE
     Dosage: 2ND CHEMOTHERAPY,BORTEZOMIB 1.8MG + 0.9% NS 0.72ML
     Route: 058
     Dates: start: 20220308, end: 20220308
  18. SODIUM CHLORIDE [Suspect]
     Active Substance: SODIUM CHLORIDE
     Dosage: DOSE REINTRODUCED
     Route: 058

REACTIONS (3)
  - Anaesthesia [Unknown]
  - Bone pain [Unknown]
  - Discomfort [Unknown]

NARRATIVE: CASE EVENT DATE: 20220411
